FAERS Safety Report 4431313-5 (Version None)
Quarter: 2004Q3

REPORT INFORMATION
  Report Type: 
  Country: None (occurrence: None)
  Receive Date: 20040824
  Receipt Date: 20040604
  Transmission Date: 20050211
  Serious: Yes (Life-Threatening, Disabling)
  Sender: FDA-Public Use
  Company Number: US-MERCK-0406USA00507

PATIENT
  Sex: Female

DRUGS (2)
  1. LOTENSIN [Concomitant]
     Route: 065
  2. ZOCOR [Suspect]
     Indication: HYPERCHOLESTEROLAEMIA
     Route: 048
     Dates: start: 20031201

REACTIONS (5)
  - ABASIA [None]
  - ASTHENIA [None]
  - DYSPNOEA [None]
  - FREQUENT BOWEL MOVEMENTS [None]
  - POLLAKIURIA [None]
